FAERS Safety Report 23358330 (Version 3)
Quarter: 2024Q1

REPORT INFORMATION
  Report Type: Report from Study
  Country: IE (occurrence: IE)
  Receive Date: 20240102
  Receipt Date: 20240314
  Transmission Date: 20240409
  Serious: Yes (Hospitalization, Other)
  Sender: FDA-Public Use
  Company Number: IE-Merck Healthcare KGaA-2023494896

PATIENT
  Age: 50 Year
  Sex: Male

DRUGS (14)
  1. MAVENCLAD [Suspect]
     Active Substance: CLADRIBINE
     Indication: Relapsing-remitting multiple sclerosis
     Dosage: YEAR ONE WEEK ONE THERAPY: 2 TABLETS ON DAYS 1 TO 4 AND 1 TABLET ON DAY 5.
     Route: 048
     Dates: start: 20231213, end: 20231217
  2. DIAZEPAM [Suspect]
     Active Substance: DIAZEPAM
     Indication: Panic attack
     Dosage: ONGOING
     Route: 048
  3. OMEPRAZOLE [Concomitant]
     Active Substance: OMEPRAZOLE
     Indication: Product used for unknown indication
     Route: 048
  4. ZANIFLEX [Concomitant]
     Indication: Product used for unknown indication
     Dosage: ONGOING
     Route: 048
  5. BACLOFEN [Concomitant]
     Active Substance: BACLOFEN
     Indication: Product used for unknown indication
     Dosage: ONGOING
     Route: 048
  6. ZOVIRAX [Concomitant]
     Active Substance: ACYCLOVIR
     Indication: Product used for unknown indication
     Dosage: ONGOING
     Route: 048
  7. LYRICA [Concomitant]
     Active Substance: PREGABALIN
     Indication: Product used for unknown indication
     Dosage: ONGOING
     Route: 048
  8. PROVIGIL [Concomitant]
     Active Substance: MODAFINIL
     Indication: Product used for unknown indication
     Dosage: ONGOING
     Route: 048
  9. IMODIUM [Concomitant]
     Active Substance: LOPERAMIDE HYDROCHLORIDE
     Indication: Product used for unknown indication
     Dosage: (AS REQUIRED) ONGOING
     Route: 048
  10. ATORVASTATIN [Concomitant]
     Active Substance: ATORVASTATIN
     Indication: Product used for unknown indication
     Dosage: ONGOING
     Route: 048
  11. DELTACORTRIL [Concomitant]
     Active Substance: PREDNISOLONE
     Indication: Product used for unknown indication
     Dosage: ONGOING
     Route: 048
  12. BOTOX [Concomitant]
     Active Substance: ONABOTULINUMTOXINA
     Indication: Arthralgia
     Dosage: ONGOING
     Route: 048
  13. AZITHROMYCIN [Concomitant]
     Active Substance: AZITHROMYCIN
     Indication: Product used for unknown indication
     Dosage: ONGOING
     Route: 048
  14. LIPITOR [Concomitant]
     Active Substance: ATORVASTATIN CALCIUM
     Indication: Blood cholesterol
     Dosage: ONGOING
     Route: 048

REACTIONS (18)
  - Panic attack [Recovered/Resolved]
  - Respiratory tract infection [Recovering/Resolving]
  - Vena cava thrombosis [Unknown]
  - Lymphocyte count decreased [Recovering/Resolving]
  - Brain fog [Recovered/Resolved]
  - Joint swelling [Recovering/Resolving]
  - Peripheral swelling [Recovering/Resolving]
  - Condition aggravated [Recovering/Resolving]
  - Coordination abnormal [Unknown]
  - Arthralgia [Unknown]
  - Fatigue [Unknown]
  - Somnolence [Not Recovered/Not Resolved]
  - Dysarthria [Unknown]
  - Dysphonia [Unknown]
  - Feeling abnormal [Unknown]
  - Hypotension [Unknown]
  - Decreased appetite [Unknown]
  - Spinal osteoarthritis [Unknown]

NARRATIVE: CASE EVENT DATE: 20231213
